FAERS Safety Report 5907723-3 (Version None)
Quarter: 2008Q4

REPORT INFORMATION
  Report Type: 
  Country: None (occurrence: None)
  Receive Date: 20081003
  Receipt Date: 19960719
  Transmission Date: 20090506
  Serious: Yes (Death)
  Sender: FDA-Public Use
  Company Number: MX-ROCHE-96070001-TOR001A

PATIENT
  Age: 23 Year
  Sex: Male

DRUGS (3)
  1. TORSEMIDE [Suspect]
     Route: 042
     Dates: start: 19960707, end: 19960707
  2. FUROSEMIDE [Concomitant]
  3. SULFAMETHOXAZOLE AND TRIMETHOPRIM [Concomitant]

REACTIONS (1)
  - DEATH [None]
